FAERS Safety Report 4488546-1 (Version None)
Quarter: 2004Q4

REPORT INFORMATION
  Report Type: 
  Country: None (occurrence: None)
  Receive Date: 20041028
  Receipt Date: 20041028
  Transmission Date: 20050328
  Serious: No
  Sender: FDA-Public Use
  Company Number: None

PATIENT
  Age: 46 Year
  Sex: Female
  Weight: 79.3795 kg

DRUGS (2)
  1. TOPAMAX [Suspect]
     Indication: MIGRAINE PROPHYLAXIS
     Dosage: 1 TAB TWICE A DAY
  2. LEVOTHYROXINE SODIUM [Concomitant]

REACTIONS (5)
  - ANGLE CLOSURE GLAUCOMA [None]
  - BLINDNESS TRANSIENT [None]
  - IMPAIRED DRIVING ABILITY [None]
  - LENS DISORDER [None]
  - VISUAL ACUITY REDUCED [None]
